FAERS Safety Report 8318365-7 (Version None)
Quarter: 2012Q2

REPORT INFORMATION
  Report Type: 
  Country: None (occurrence: None)
  Receive Date: 20120427
  Receipt Date: 20120418
  Transmission Date: 20120825
  Serious: Yes (Hospitalization)
  Sender: FDA-Public Use
  Company Number: BR-ASTRAZENECA-2012SE26147

PATIENT
  Age: 70 Year
  Sex: Female
  Weight: 58 kg

DRUGS (8)
  1. ATENOLOL [Suspect]
     Indication: HYPERTENSION
     Route: 048
     Dates: start: 20070101
  2. ATACAND [Suspect]
     Route: 048
     Dates: start: 20120301
  3. ATACAND HCT [Suspect]
     Indication: HYPERTENSION
     Dosage: 16/12.5  MG DAILY
     Route: 048
     Dates: start: 20070101, end: 20120301
  4. FORMOTEROL FUMARATE [Concomitant]
     Route: 055
     Dates: start: 20080101
  5. ATACAND [Suspect]
     Indication: HYPERTENSION
     Route: 048
     Dates: end: 20070101
  6. ASPIRIN [Concomitant]
     Route: 048
     Dates: start: 20070101
  7. HYGROTON [Suspect]
     Indication: HYPERTENSION
     Route: 048
     Dates: start: 20080101, end: 20120301
  8. ATORVASTATIN CALCIUM [Concomitant]
     Route: 048
     Dates: start: 20070101

REACTIONS (8)
  - COUGH [None]
  - PNEUMONIA [None]
  - DRUG INEFFECTIVE [None]
  - BLOOD PRESSURE INCREASED [None]
  - BLOOD SODIUM DECREASED [None]
  - BRONCHITIS [None]
  - URINARY INCONTINENCE [None]
  - HIATUS HERNIA [None]
